FAERS Safety Report 16782908 (Version 1)
Quarter: 2019Q3

REPORT INFORMATION
  Report Type: Spontaneous
  Country: PT (occurrence: PT)
  Receive Date: 20190906
  Receipt Date: 20190906
  Transmission Date: 20191005
  Serious: Yes (Other)
  Sender: FDA-Public Use
  Company Number: PT-009507513-1902PRT002840

PATIENT
  Age: 30 Year
  Sex: Female

DRUGS (2)
  1. IMPLANON [Suspect]
     Active Substance: ETONOGESTREL
     Dosage: NEW IMPLANT
     Route: 059
     Dates: start: 20180828
  2. IMPLANON [Suspect]
     Active Substance: ETONOGESTREL
     Indication: CONTRACEPTION
     Dosage: FIRST IMPLANT
     Route: 059
     Dates: start: 20150625, end: 20180828

REACTIONS (8)
  - Device deployment issue [Not Recovered/Not Resolved]
  - Unintended pregnancy [Not Recovered/Not Resolved]
  - Complication associated with device [Not Recovered/Not Resolved]
  - Pregnancy with implant contraceptive [Not Recovered/Not Resolved]
  - Incorrect product administration duration [Unknown]
  - Obesity [Unknown]
  - Implant site infection [Unknown]
  - Adverse event [Unknown]

NARRATIVE: CASE EVENT DATE: 20180626
